FAERS Safety Report 25745083 (Version 1)
Quarter: 2025Q3

REPORT INFORMATION
  Report Type: Spontaneous
  Country: US (occurrence: US)
  Receive Date: 20250901
  Receipt Date: 20250901
  Transmission Date: 20251020
  Serious: No
  Sender: SANDOZ
  Company Number: US-SANDOZ-SDZ2025US061964

PATIENT
  Sex: Female

DRUGS (1)
  1. RECLAST [Suspect]
     Active Substance: ZOLEDRONIC ACID
     Indication: Osteoporosis
     Route: 065
     Dates: start: 2025

REACTIONS (5)
  - Movement disorder [Recovering/Resolving]
  - Joint swelling [Recovering/Resolving]
  - Joint stiffness [Recovering/Resolving]
  - Pain [Recovering/Resolving]
  - Headache [Recovering/Resolving]

NARRATIVE: CASE EVENT DATE: 20250101
